FAERS Safety Report 8479977-3 (Version None)
Quarter: 2012Q2

REPORT INFORMATION
  Report Type: 
  Country: None (occurrence: None)
  Receive Date: 20120629
  Receipt Date: 20120619
  Transmission Date: 20120825
  Serious: Yes (Death, Life-Threatening)
  Sender: FDA-Public Use
  Company Number: JP-PFIZER INC-2012123905

PATIENT
  Age: 81 Year
  Sex: Male
  Weight: 52.9 kg

DRUGS (16)
  1. ZITHROMAX [Suspect]
     Indication: PNEUMONIA
     Dosage: 500 MG, 1X/DAY
     Route: 048
     Dates: start: 20120426, end: 20120426
  2. HOKUNALIN [Concomitant]
     Indication: ASTHMA
     Dosage: 2 MG, 1X/DAY
     Route: 062
     Dates: start: 20120427
  3. DOBUPUM [Concomitant]
     Indication: SEPTIC SHOCK
     Dosage: 150 MG, 1X/DAY CONTINUOUSS
     Route: 042
     Dates: start: 20120427, end: 20120430
  4. MEROPENEM [Concomitant]
     Indication: SEPTIC SHOCK
     Dosage: 1 G, 2X/DAY
     Route: 042
     Dates: start: 20120429, end: 20120501
  5. RECOMODULIN [Concomitant]
     Indication: DISSEMINATED INTRAVASCULAR COAGULATION
     Dosage: 12800 IU, 1X/DAY
     Route: 042
     Dates: start: 20120427, end: 20120502
  6. AMIODARONE HYDROCHLORIDE [Suspect]
     Indication: VENTRICULAR TACHYCARDIA
     Dosage: 125 MG, 1X/DAY
     Route: 042
     Dates: start: 20120428, end: 20120429
  7. NEUART [Concomitant]
     Indication: DISSEMINATED INTRAVASCULAR COAGULATION
     Dosage: 1500 IU, 1X/DAY
     Route: 042
     Dates: start: 20120428, end: 20120429
  8. AMIODARONE HYDROCHLORIDE [Suspect]
     Dosage: 600 MG, 1X/DAY CONTINUOUS
     Route: 041
     Dates: start: 20120428, end: 20120429
  9. AMIODARONE HYDROCHLORIDE [Suspect]
     Dosage: 400 MG, 1X/DAY CONTINUOUS
     Route: 041
     Dates: start: 20120430, end: 20120501
  10. FENTANYL [Concomitant]
     Dosage: 0.6 MG, 1X/DAY CONTINUOUS
     Route: 042
     Dates: start: 20120428, end: 20120501
  11. NOREPINEPHRINE BITARTRATE [Concomitant]
     Indication: SEPTIC SHOCK
     Dosage: 3 MG, 1X/DAY CONTINUOUS
     Route: 042
     Dates: start: 20120427, end: 20120429
  12. HYDROCORTISONE SODIUM SUCCINATE [Concomitant]
     Indication: SEPTIC SHOCK
     Dosage: 200 MG, 1X/DAY CONTINUOUS
     Route: 042
     Dates: start: 20120427, end: 20120430
  13. ZITHROMAX [Suspect]
     Dosage: 500 MG, 1X/DAY
     Route: 041
     Dates: start: 20120427, end: 20120501
  14. FENTANYL [Concomitant]
     Indication: SEDATION
     Dosage: 0.1 MG, 1X/DAY CONTINUOUS
     Route: 042
     Dates: start: 20120427, end: 20120427
  15. CEFTRIAXONE SODIUM [Concomitant]
     Indication: PNEUMONIA
     Dosage: 1 G, 1X/DAY
     Route: 041
     Dates: start: 20120425, end: 20120427
  16. AMPICILLIN SODIUM/SULBACTAM SODIUM [Concomitant]
     Indication: PNEUMONIA
     Dosage: 3 G, 2X/DAY
     Route: 041
     Dates: start: 20120427, end: 20120428

REACTIONS (3)
  - SHOCK [None]
  - BLOOD PRESSURE DECREASED [None]
  - CARDIAC ARREST [None]
